FAERS Safety Report 6379286-2 (Version None)
Quarter: 2009Q3

REPORT INFORMATION
  Report Type: 
  Country: None (occurrence: None)
  Receive Date: 20090923
  Receipt Date: 20090923
  Transmission Date: 20100115
  Serious: Yes (Other)
  Sender: FDA-Public Use
  Company Number: None

PATIENT
  Age: 74 Year
  Sex: Female

DRUGS (16)
  1. NPH INSULIN [Suspect]
     Indication: TYPE 1 DIABETES MELLITUS
     Dosage: 5 UNITS BID SQ
     Route: 058
     Dates: end: 20081110
  2. ATORVASTATIN [Concomitant]
  3. GLUCOSE GEL [Concomitant]
  4. HYDROMORPHONE [Concomitant]
  5. TEMAZEPAM [Concomitant]
  6. CINACALCET [Concomitant]
  7. INSULIN [Concomitant]
  8. IPRATROPIUM BROMIDE AND ALBUTEROL SULFATE [Concomitant]
  9. EPOETIN [Concomitant]
  10. ASPART [Concomitant]
  11. FERROUS SULFATE TAB [Concomitant]
  12. LISINOPRIL [Concomitant]
  13. GABAPENTIN [Concomitant]
  14. MAALOX [Concomitant]
  15. LANSOPRAZOLE [Concomitant]
  16. PROMETHAZINE [Concomitant]

REACTIONS (4)
  - ANXIETY [None]
  - BLOOD CREATININE INCREASED [None]
  - BLOOD GLUCOSE DECREASED [None]
  - HYPERHIDROSIS [None]
